FAERS Safety Report 10027809 (Version 2)
Quarter: 2014Q1

REPORT INFORMATION
  Report Type: Spontaneous
  Country: US (occurrence: US)
  Receive Date: 20140321
  Receipt Date: 20140321
  Transmission Date: 20141002
  Serious: Yes (Other)
  Sender: FDA-Public Use
  Company Number: US-GE HEALTHCARE MEDICAL DIAGNOSTICS-OSCN-PR-0810S-0572

PATIENT
  Age: 38 Year
  Sex: Male

DRUGS (41)
  1. OMNISCAN [Suspect]
     Indication: PRODUCT USED FOR UNKNOWN INDICATION
     Route: 042
     Dates: start: 19990622, end: 19990622
  2. OMNISCAN [Suspect]
     Route: 042
     Dates: start: 19990720, end: 19990720
  3. OMNISCAN [Suspect]
     Route: 042
     Dates: start: 20010424, end: 20010424
  4. OMNISCAN [Suspect]
     Route: 042
     Dates: start: 20011030, end: 20011030
  5. OMNISCAN [Suspect]
     Route: 042
     Dates: start: 20020114, end: 20020114
  6. OMNISCAN [Suspect]
     Route: 042
     Dates: start: 20020402, end: 20020402
  7. OMNISCAN [Suspect]
     Route: 042
     Dates: start: 20020516, end: 20020516
  8. OMNISCAN [Suspect]
     Route: 042
     Dates: start: 20020730, end: 20020730
  9. OMNISCAN [Suspect]
     Route: 042
     Dates: start: 20021022, end: 20021022
  10. OMNISCAN [Suspect]
     Route: 042
     Dates: start: 20021107, end: 20021107
  11. OMNISCAN [Suspect]
     Route: 042
     Dates: start: 20030128, end: 20030128
  12. OMNISCAN [Suspect]
     Route: 042
     Dates: start: 20030721, end: 20030721
  13. OMNISCAN [Suspect]
     Route: 042
     Dates: start: 20030813, end: 20030813
  14. OMNISCAN [Suspect]
     Route: 042
     Dates: start: 20030908, end: 20030908
  15. OMNISCAN [Suspect]
     Route: 042
     Dates: start: 20031121, end: 20031121
  16. OMNISCAN [Suspect]
     Route: 042
     Dates: start: 20040224, end: 20040224
  17. OMNISCAN [Suspect]
     Route: 042
     Dates: start: 20041011, end: 20041011
  18. OMNISCAN [Suspect]
     Route: 042
     Dates: start: 20041015, end: 20041015
  19. OMNISCAN [Suspect]
     Route: 042
     Dates: start: 20050211, end: 20050211
  20. OMNISCAN [Suspect]
     Route: 042
     Dates: start: 20050426, end: 20050426
  21. OMNISCAN [Suspect]
     Route: 042
     Dates: start: 20050825, end: 20050825
  22. OMNISCAN [Suspect]
     Route: 042
     Dates: start: 20050829, end: 20050829
  23. OMNISCAN [Suspect]
     Route: 042
     Dates: start: 20051011, end: 20051011
  24. OMNISCAN [Suspect]
     Route: 042
     Dates: start: 20051219, end: 20051219
  25. OMNISCAN [Suspect]
     Route: 042
     Dates: start: 20060306, end: 20060306
  26. OMNISCAN [Suspect]
     Route: 042
     Dates: start: 20060330, end: 20060330
  27. OMNISCAN [Suspect]
     Route: 042
     Dates: start: 20060530, end: 20060530
  28. OMNISCAN [Suspect]
     Route: 042
     Dates: start: 20060809, end: 20060809
  29. OMNISCAN [Suspect]
     Route: 042
     Dates: start: 20060828, end: 20060828
  30. OMNISCAN [Suspect]
     Route: 042
     Dates: start: 20061017, end: 20061017
  31. OMNISCAN [Suspect]
     Route: 042
     Dates: start: 20061219, end: 20061219
  32. OMNISCAN [Suspect]
     Route: 042
     Dates: start: 20070227, end: 20070227
  33. OMNISCAN [Suspect]
     Route: 042
     Dates: start: 20070411, end: 20070411
  34. GADOLINIUM (UNSPECIFIED) [Suspect]
     Indication: PRODUCT USED FOR UNKNOWN INDICATION
     Route: 042
     Dates: start: 19890313, end: 19890313
  35. GADOLINIUM (UNSPECIFIED) [Suspect]
     Route: 042
     Dates: start: 20060414, end: 20060414
  36. MAGNEVIST [Suspect]
     Indication: BACK PAIN
     Route: 042
     Dates: start: 19890310, end: 19890310
  37. MAGNEVIST [Suspect]
     Indication: PAIN IN EXTREMITY
     Route: 042
     Dates: start: 19890313, end: 19890313
  38. MAGNEVIST [Suspect]
     Route: 042
     Dates: start: 19900618, end: 19900618
  39. MAGNEVIST [Suspect]
     Route: 042
     Dates: start: 19920417, end: 19920417
  40. MAGNEVIST [Suspect]
     Route: 042
     Dates: start: 19970606, end: 19970606
  41. DECADRON [Concomitant]

REACTIONS (1)
  - Nephrogenic systemic fibrosis [Not Recovered/Not Resolved]
